FAERS Safety Report 20492930 (Version 3)
Quarter: 2022Q1

REPORT INFORMATION
  Report Type: Report from Study
  Country: DE (occurrence: DE)
  Receive Date: 20220219
  Receipt Date: 20220323
  Transmission Date: 20220423
  Serious: Yes (Congenital Anomaly)
  Sender: FDA-Public Use
  Company Number: DE-TEVA-2022-DE-2008953

PATIENT
  Age: 0 Year
  Sex: Male

DRUGS (2)
  1. EMTRICITABINE\TENOFOVIR DISOPROXIL [Suspect]
     Active Substance: EMTRICITABINE\TENOFOVIR DISOPROXIL
     Dosage: 200/245 MG PER DAY
     Route: 064
     Dates: start: 20210412
  2. RALTEGRAVIR [Suspect]
     Active Substance: RALTEGRAVIR
     Dosage: 2X 400 MG PER DAY
     Dates: start: 20210412

REACTIONS (2)
  - Congenital hand malformation [Unknown]
  - Foetal exposure during pregnancy [Unknown]

NARRATIVE: CASE EVENT DATE: 20210714
